FAERS Safety Report 7350571-0 (Version None)
Quarter: 2011Q1

REPORT INFORMATION
  Report Type: 
  Country: None (occurrence: None)
  Receive Date: 20110314
  Receipt Date: 20110309
  Transmission Date: 20110831
  Serious: Yes (Disabling)
  Sender: FDA-Public Use
  Company Number: GB-MERCK-1103GBR00049

PATIENT
  Age: 51 Year
  Sex: Male
  Weight: 73 kg

DRUGS (4)
  1. METFORMIN [Concomitant]
     Route: 065
     Dates: start: 20101022, end: 20110207
  2. JANUVIA [Suspect]
     Route: 048
     Dates: start: 20101225
  3. INSULIN ASPART, BIPHASIC ISOPHANE [INJECTION] [Concomitant]
     Route: 065
  4. GLICLAZIDE [Concomitant]
     Route: 065
     Dates: start: 20101022, end: 20110211

REACTIONS (4)
  - DEPRESSION [None]
  - DISTURBANCE IN ATTENTION [None]
  - MEMORY IMPAIRMENT [None]
  - VISION BLURRED [None]
